FAERS Safety Report 4461474-3 (Version None)
Quarter: 2004Q3

REPORT INFORMATION
  Report Type: 
  Country: None (occurrence: None)
  Receive Date: 20040917
  Receipt Date: 20040910
  Transmission Date: 20050211
  Serious: Yes (Life-Threatening, Hospitalization, Other)
  Sender: FDA-Public Use
  Company Number: 600620

PATIENT
  Age: 69 Year
  Sex: Male

DRUGS (1)
  1. GAMMAGARD S/D [Suspect]
     Indication: PNEUMONIA
     Dosage: 70 GM; ONCE; INTRAVENOUS
     Route: 042
     Dates: start: 20010411, end: 20010411

REACTIONS (1)
  - ACUTE MYOCARDIAL INFARCTION [None]
